FAERS Safety Report 20439513 (Version 2)
Quarter: 2022Q1

REPORT INFORMATION
  Report Type: Spontaneous
  Country: UA (occurrence: UA)
  Receive Date: 20220207
  Receipt Date: 20220216
  Transmission Date: 20220423
  Serious: Yes (Hospitalization, Other)
  Sender: FDA-Public Use
  Company Number: UA-TAKEDA-2022TUS007330

PATIENT
  Age: 43 Year
  Sex: Female

DRUGS (1)
  1. ENTYVIO [Suspect]
     Active Substance: VEDOLIZUMAB
     Indication: Crohn^s disease
     Dosage: UNK
     Route: 065
     Dates: start: 2018

REACTIONS (4)
  - Transient ischaemic attack [Unknown]
  - Cranial nerve disorder [Unknown]
  - Abdominal abscess [Unknown]
  - Gastrointestinal fistula [Unknown]

NARRATIVE: CASE EVENT DATE: 20211228
